FAERS Safety Report 24063003 (Version 3)
Quarter: 2024Q3

REPORT INFORMATION
  Report Type: Spontaneous
  Country: AU (occurrence: AU)
  Receive Date: 20240709
  Receipt Date: 20240911
  Transmission Date: 20241016
  Serious: Yes (Hospitalization, Other)
  Sender: AMGEN
  Company Number: AU-AMGEN-AUSSP2024130708

PATIENT
  Age: 77 Year
  Sex: Male
  Weight: 53.6 kg

DRUGS (4)
  1. PROLIA [Suspect]
     Active Substance: DENOSUMAB
     Indication: Osteoporosis
     Dosage: 60 MILLIGRAM, Q6MO
     Route: 058
     Dates: start: 202211
  2. PROLIA [Suspect]
     Active Substance: DENOSUMAB
     Indication: Bone loss
  3. ATORVASTATIN [Concomitant]
     Active Substance: ATORVASTATIN
  4. MAGNESIUM [Concomitant]
     Active Substance: MAGNESIUM

REACTIONS (6)
  - Chronic kidney disease [Unknown]
  - Prostate cancer [Unknown]
  - Hypocalcaemia [Recovered/Resolved]
  - Renal tubular necrosis [Unknown]
  - Ill-defined disorder [Unknown]
  - Hypercalcaemia [Unknown]
